FAERS Safety Report 10215790 (Version 2)
Quarter: 2014Q2

REPORT INFORMATION
  Report Type: Report from Study
  Country: BR (occurrence: BR)
  Receive Date: 20140604
  Receipt Date: 20140629
  Transmission Date: 20141212
  Serious: Yes (Hospitalization, Other)
  Sender: FDA-Public Use
  Company Number: PHHY2014BR066745

PATIENT
  Sex: Female
  Weight: 45 kg

DRUGS (3)
  1. ZOTEON PODHALER [Suspect]
     Indication: PSEUDOMONAS INFECTION
     Dosage: 8 DF, DAILY
     Dates: start: 201403
  2. CREON [Concomitant]
     Indication: PANCREATIC DISORDER
     Dosage: 25 DF, DAILY
     Route: 048
  3. PROTEIN SUPPLEMENTS [Concomitant]
     Dosage: 1 DF (1SACHET DILUTED IN THE MILK), UNK
     Route: 048

REACTIONS (3)
  - Pseudomonas infection [Recovered/Resolved]
  - Bacterial infection [Not Recovered/Not Resolved]
  - Cystic fibrosis [Unknown]
